FAERS Safety Report 23536565 (Version 2)
Quarter: 2024Q3

REPORT INFORMATION
  Report Type: Report from Study
  Country: US (occurrence: US)
  Receive Date: 20240219
  Receipt Date: 20240731
  Transmission Date: 20241016
  Serious: No
  Sender: AURINIA PHARMACEUTICALS
  Company Number: US-AURINIA PHARMACEUTICALS INC.-AUR-004970

PATIENT
  Sex: Male

DRUGS (8)
  1. LUPKYNIS [Suspect]
     Active Substance: VOCLOSPORIN
     Indication: Lupus nephritis
     Dosage: 23.7 MILLIGRAM, BID
     Route: 048
     Dates: start: 20210831
  2. LUPKYNIS [Suspect]
     Active Substance: VOCLOSPORIN
     Indication: Renal disorder
  3. LUPKYNIS [Suspect]
     Active Substance: VOCLOSPORIN
     Indication: Dyspepsia
  4. LUPKYNIS [Suspect]
     Active Substance: VOCLOSPORIN
     Indication: Gastrooesophageal reflux disease
  5. NEXIUM [Suspect]
     Active Substance: ESOMEPRAZOLE MAGNESIUM
     Indication: Dyspepsia
     Dosage: UNK
  6. NEXIUM [Suspect]
     Active Substance: ESOMEPRAZOLE MAGNESIUM
     Indication: Gastrooesophageal reflux disease
  7. NEXIUM [Suspect]
     Active Substance: ESOMEPRAZOLE MAGNESIUM
     Indication: Lupus nephritis
  8. NEXIUM [Suspect]
     Active Substance: ESOMEPRAZOLE MAGNESIUM
     Indication: Renal disorder

REACTIONS (4)
  - Gastrooesophageal reflux disease [Unknown]
  - Joint swelling [Unknown]
  - Fluid retention [Unknown]
  - Dyspepsia [Unknown]
